FAERS Safety Report 17065327 (Version 1)
Quarter: 2019Q4

REPORT INFORMATION
  Report Type: Spontaneous
  Country: US (occurrence: US)
  Receive Date: 20191122
  Receipt Date: 20191122
  Transmission Date: 20200122
  Serious: No
  Sender: FDA-Public Use
  Company Number: None

PATIENT
  Age: 30 Year
  Sex: Female

DRUGS (4)
  1. HUMIRA [Suspect]
     Active Substance: ADALIMUMAB
     Indication: PSORIASIS
     Dosage: ?          OTHER FREQUENCY:ONCE ON DAY 1;?
     Route: 058
     Dates: start: 20150213
  2. ALEVE TAB 220 MG [Concomitant]
  3. IMITREX TAB 25 MG [Concomitant]
  4. MULTIVITAMIN TAB WOMEN [Concomitant]

REACTIONS (2)
  - Pregnancy [None]
  - Exposure during pregnancy [None]
